FAERS Safety Report 7973222-0 (Version None)
Quarter: 2011Q4

REPORT INFORMATION
  Report Type: 
  Country: None (occurrence: None)
  Receive Date: 20111213
  Receipt Date: 20111205
  Transmission Date: 20120403
  Serious: Yes (Hospitalization)
  Sender: FDA-Public Use
  Company Number: PHHY2011JP103133

PATIENT
  Age: 87 Year
  Sex: Female

DRUGS (8)
  1. CRESTOR [Concomitant]
     Dosage: 2.5 MG, UNK
     Route: 048
  2. ZANTAC [Concomitant]
     Dosage: 75 MG, UNK
     Route: 048
  3. SIOPELMIN L [Concomitant]
     Dosage: 40 MG, UNK
     Route: 048
  4. DIOVAN HCT [Suspect]
     Indication: HYPERTENSION
     Dosage: 1 DF, DAILY
     Route: 048
  5. DIOVAN [Suspect]
     Indication: HYPERTENSION
     Dosage: 80 MG DAILY
     Route: 048
  6. MENATETRENONE [Concomitant]
     Dosage: 30 MG, UNK
     Route: 048
  7. HALCION [Concomitant]
     Dosage: 0.25 MG, UNK
     Route: 048
  8. PROPAFENONE HYDROCHLORIDE [Concomitant]
     Dosage: 150 MG, UNK
     Route: 048

REACTIONS (3)
  - BRADYCARDIA [None]
  - BLOOD POTASSIUM INCREASED [None]
  - HYPOTENSION [None]
